FAERS Safety Report 24270858 (Version 4)
Quarter: 2024Q3

REPORT INFORMATION
  Report Type: Report from Study
  Country: KR (occurrence: KR)
  Receive Date: 20240831
  Receipt Date: 20240926
  Transmission Date: 20241017
  Serious: Yes (Hospitalization, Other)
  Sender: TAKEDA
  Company Number: KR-TAKEDA-2021TUS023770

PATIENT
  Age: 54 Year
  Sex: Male
  Weight: 74 kg

DRUGS (15)
  1. BRIGATINIB [Suspect]
     Active Substance: BRIGATINIB
     Indication: Non-small cell lung cancer
     Dosage: 90 MILLIGRAM, QD
     Route: 065
     Dates: start: 20201228, end: 20210103
  2. BRIGATINIB [Suspect]
     Active Substance: BRIGATINIB
     Dosage: 180 MILLIGRAM, QD
     Route: 065
     Dates: start: 20210104, end: 20210711
  3. REXIPIN [Concomitant]
     Indication: Cough
     Dosage: 800 MILLIGRAM
     Route: 048
     Dates: start: 20200526
  4. PROCATEROL HYDROCHLORIDE [Concomitant]
     Active Substance: PROCATEROL HYDROCHLORIDE
     Indication: Cough
     Dosage: 75 MICROGRAM
     Route: 048
     Dates: start: 20200530, end: 20210322
  5. SLIVAN [Concomitant]
     Indication: Depression
     Dosage: 2 MILLIGRAM
     Route: 048
     Dates: start: 20200529
  6. CYMBALTA [Concomitant]
     Active Substance: DULOXETINE HYDROCHLORIDE
     Indication: Depression
     Dosage: 120 MILLIGRAM
     Route: 048
     Dates: start: 20200529
  7. KANARB [Concomitant]
     Indication: Hypertension
     Dosage: 60 MILLIGRAM
     Route: 048
     Dates: start: 20200828
  8. REBAMIPIDE [Concomitant]
     Active Substance: REBAMIPIDE
     Indication: Gastrointestinal disorder
     Dosage: 300 MILLIGRAM
     Route: 048
     Dates: start: 20200915
  9. SUPRAX [Concomitant]
     Active Substance: CEFIXIME
     Indication: Respiratory tract infection
     Dosage: 200 MILLIGRAM
     Route: 048
     Dates: start: 20210106, end: 20210222
  10. CODENING [Concomitant]
     Indication: Cough
     Dosage: UNK
     Route: 048
     Dates: start: 20210217, end: 20210309
  11. MOSAPRIDE CITRATE [Concomitant]
     Active Substance: MOSAPRIDE CITRATE
     Indication: Gastrooesophageal reflux disease
     Dosage: 15 MILLIGRAM
     Route: 048
     Dates: start: 20210127, end: 20210202
  12. MOSAPRIDE CITRATE [Concomitant]
     Active Substance: MOSAPRIDE CITRATE
     Dosage: 15 MILLIGRAM
     Route: 048
     Dates: start: 20210217, end: 20210309
  13. NEXIUM [Concomitant]
     Active Substance: ESOMEPRAZOLE MAGNESIUM
     Indication: Gastrooesophageal reflux disease
     Dosage: 20 MILLIGRAM
     Route: 048
     Dates: start: 20210127, end: 20210202
  14. NEXIUM [Concomitant]
     Active Substance: ESOMEPRAZOLE MAGNESIUM
     Dosage: 20 MILLIGRAM
     Route: 048
     Dates: start: 20210217, end: 20210309
  15. ALMAGEL-F [Concomitant]
     Indication: Chronic gastritis
     Dosage: 45 MILLILITER
     Route: 048
     Dates: start: 20210217, end: 20210309

REACTIONS (4)
  - Pneumonia [Recovered/Resolved]
  - Radiation pneumonitis [Not Recovered/Not Resolved]
  - Chest pain [Not Recovered/Not Resolved]
  - Aspartate aminotransferase increased [Recovering/Resolving]

NARRATIVE: CASE EVENT DATE: 20210316
